FAERS Safety Report 16180075 (Version 1)
Quarter: 2019Q2

REPORT INFORMATION
  Report Type: Spontaneous
  Country: US (occurrence: US)
  Receive Date: 20190409
  Receipt Date: 20190409
  Transmission Date: 20190711
  Serious: Yes (Hospitalization)
  Sender: FDA-Public Use
  Company Number: None

PATIENT
  Age: 74 Year
  Sex: Male
  Weight: 119.2 kg

DRUGS (1)
  1. COLCHICINE. [Suspect]
     Active Substance: COLCHICINE
     Indication: GOUT
     Route: 048

REACTIONS (8)
  - Abdominal pain [None]
  - Diarrhoea [None]
  - Treatment noncompliance [None]
  - Chest pain [None]
  - Atrial fibrillation [None]
  - Nausea [None]
  - Blood creatinine increased [None]
  - Toxicity to various agents [None]

NARRATIVE: CASE EVENT DATE: 20190406
